FAERS Safety Report 4755567-0 (Version None)
Quarter: 2005Q3

REPORT INFORMATION
  Report Type: 
  Country: None (occurrence: None)
  Receive Date: 20050830
  Receipt Date: 20050518
  Transmission Date: 20060218
  Serious: Yes (Hospitalization, Other)
  Sender: FDA-Public Use
  Company Number: US-BRISTOL-MYERS SQUIBB COMPANY-12973749

PATIENT
  Age: 51 Year
  Sex: Female

DRUGS (9)
  1. ABILIFY [Suspect]
     Indication: PSYCHOTIC DISORDER
     Dosage: VARYING DOSES
     Dates: end: 20050201
  2. ABILIFY [Suspect]
     Indication: BIPOLAR DISORDER
     Dosage: VARYING DOSES
     Dates: end: 20050201
  3. LAMICTAL [Concomitant]
  4. DEPAKOTE [Concomitant]
  5. LEXAPRO [Concomitant]
  6. STRATTERA [Concomitant]
  7. WELLBUTRIN [Concomitant]
  8. RISTORIL [Concomitant]
  9. MAGNESIUM SULFATE [Concomitant]

REACTIONS (9)
  - ANORGASMIA [None]
  - CLUMSINESS [None]
  - DEPRESSION [None]
  - DIARRHOEA [None]
  - DIZZINESS [None]
  - HALLUCINATION, AUDITORY [None]
  - SUICIDE ATTEMPT [None]
  - TARDIVE DYSKINESIA [None]
  - TREATMENT NONCOMPLIANCE [None]
